FAERS Safety Report 4627505-2 (Version None)
Quarter: 2005Q2

REPORT INFORMATION
  Report Type: 
  Country: None (occurrence: None)
  Receive Date: 20050405
  Receipt Date: 20041204
  Transmission Date: 20051028
  Serious: Yes (Other)
  Sender: FDA-Public Use
  Company Number: 2004097420

PATIENT
  Age: 32 Year
  Sex: Female
  Weight: 151.955 kg

DRUGS (2)
  1. DEPO-PROVERA [Suspect]
     Indication: ILL-DEFINED DISORDER
     Dosage: SEE IMAGE
     Route: 030
     Dates: start: 20030102, end: 20030102
  2. DEPO-PROVERA [Suspect]
     Indication: ILL-DEFINED DISORDER
     Dosage: SEE IMAGE
     Route: 030
     Dates: start: 20031101, end: 20031101

REACTIONS (5)
  - AMENORRHOEA [None]
  - ARTHRITIS [None]
  - BONE PAIN [None]
  - INSOMNIA [None]
  - POLYCYSTIC OVARIES [None]
